FAERS Safety Report 5729576-9 (Version None)
Quarter: 2008Q2

REPORT INFORMATION
  Report Type: 
  Country: None (occurrence: None)
  Receive Date: 20080501
  Receipt Date: 20080425
  Transmission Date: 20081010
  Serious: Yes (Hospitalization)
  Sender: FDA-Public Use
  Company Number: CA-JNJFOC-20080407148

PATIENT
  Age: 80 Year
  Sex: Female
  Weight: 84.1 kg

DRUGS (4)
  1. DECITABINE (DECITABINE) LYOPHILIZED POWDER [Suspect]
     Indication: ACUTE MYELOID LEUKAEMIA
     Dosage: 20 MG/M2, IN 1 DAY, INTRAVENOUS; 20 MG/M2, IN 1 DAY, INTRAVENOUS
     Route: 042
     Dates: start: 20080225, end: 20080229
  2. DECITABINE (DECITABINE) LYOPHILIZED POWDER [Suspect]
     Indication: ACUTE MYELOID LEUKAEMIA
     Dosage: 20 MG/M2, IN 1 DAY, INTRAVENOUS; 20 MG/M2, IN 1 DAY, INTRAVENOUS
     Route: 042
     Dates: start: 20080331, end: 20080404
  3. VORINOSTAT (ANTINEOPLASTIC AGENTS) UNSPECIFIED [Suspect]
     Indication: ACUTE MYELOID LEUKAEMIA
     Dosage: 200 MG, 2 IN 1 DAY, ORAL; 200 MG, 2 IN 1 DAY, ORAL
     Route: 048
     Dates: start: 20080225, end: 20080316
  4. VORINOSTAT (ANTINEOPLASTIC AGENTS) UNSPECIFIED [Suspect]
     Indication: ACUTE MYELOID LEUKAEMIA
     Dosage: 200 MG, 2 IN 1 DAY, ORAL; 200 MG, 2 IN 1 DAY, ORAL
     Route: 048
     Dates: start: 20080331, end: 20080421

REACTIONS (9)
  - BLADDER DISORDER [None]
  - CYSTOSCOPY ABNORMAL [None]
  - DIARRHOEA [None]
  - FATIGUE [None]
  - HAEMATURIA [None]
  - NEUTROPENIC SEPSIS [None]
  - PROCTITIS [None]
  - ULCER [None]
  - URINARY RETENTION [None]
